FAERS Safety Report 11010090 (Version 1)
Quarter: 2015Q2

REPORT INFORMATION
  Report Type: Spontaneous
  Country: US (occurrence: US)
  Receive Date: 20150410
  Receipt Date: 20150410
  Transmission Date: 20150821
  Serious: Yes (Hospitalization, Other)
  Sender: FDA-Public Use
  Company Number: US-BAYER-2015-032364

PATIENT
  Age: 50 Year
  Sex: Female
  Weight: 92.97 kg

DRUGS (1)
  1. BAYER CHEWABLE LOW DOSE ASPIRIN ORANGE FLAVORED [Suspect]
     Active Substance: ASPIRIN
     Indication: HEADACHE
     Dosage: 3 DF AND THEN SEVERAL HOURS LATER SHE TOOK 2 MORE
     Route: 048
     Dates: start: 2002, end: 2002

REACTIONS (9)
  - Lip swelling [Recovered/Resolved]
  - Throat tightness [Recovered/Resolved]
  - Hypoaesthesia oral [Recovered/Resolved]
  - Swollen tongue [Recovered/Resolved]
  - Drug administered to patient of inappropriate age [None]
  - Wrong technique in drug usage process [Unknown]
  - Drug hypersensitivity [Unknown]
  - Apparent death [Recovered/Resolved]
  - Pruritus generalised [Recovered/Resolved]

NARRATIVE: CASE EVENT DATE: 2002
